FAERS Safety Report 6585501-2 (Version None)
Quarter: 2010Q1

REPORT INFORMATION
  Report Type: 
  Country: None (occurrence: None)
  Receive Date: 20100217
  Receipt Date: 20100212
  Transmission Date: 20100710
  Serious: Yes (Death, Hospitalization)
  Sender: FDA-Public Use
  Company Number: CG-MERCK-1002USA01940

PATIENT
  Age: 40 Year
  Sex: Male

DRUGS (1)
  1. STROMECTOL [Suspect]
     Route: 048
     Dates: start: 20081012, end: 20081012

REACTIONS (10)
  - APRAXIA [None]
  - ASTHENIA [None]
  - DECUBITUS ULCER [None]
  - HEADACHE [None]
  - MALARIA [None]
  - MENINGITIS [None]
  - MUSCLE RIGIDITY [None]
  - NUCHAL RIGIDITY [None]
  - PYREXIA [None]
  - VERTIGO [None]
